FAERS Safety Report 5406627-2 (Version None)
Quarter: 2007Q3

REPORT INFORMATION
  Report Type: 
  Country: None (occurrence: None)
  Receive Date: 20070806
  Receipt Date: 20070731
  Transmission Date: 20080115
  Serious: Yes (Hospitalization)
  Sender: FDA-Public Use
  Company Number: PFIZER INC-2007062560

PATIENT
  Age: 54 Year
  Sex: Female
  Weight: 82 kg

DRUGS (6)
  1. SUTENT [Suspect]
     Indication: UTERINE LEIOMYOSARCOMA
     Dosage: DAILY DOSE:50MG-FREQ:DAILY, INTERVAL: 4 WKS ON, 2 WKS OFF
     Route: 048
     Dates: start: 20070420, end: 20070628
  2. DEXAMETHASONE 0.5MG TAB [Concomitant]
  3. LEVOTHYROXINE SODIUM [Concomitant]
  4. LOMOTIL [Concomitant]
  5. METOPROLOL SUCCINATE [Concomitant]
  6. PROTONIX [Concomitant]

REACTIONS (2)
  - BACK PAIN [None]
  - HYDRONEPHROSIS [None]
